FAERS Safety Report 7917385-1 (Version None)
Quarter: 2011Q4

REPORT INFORMATION
  Report Type: 
  Country: None (occurrence: None)
  Receive Date: 20111116
  Receipt Date: 20111109
  Transmission Date: 20120403
  Serious: Yes (Hospitalization, Other)
  Sender: FDA-Public Use
  Company Number: PHEH2009US12471

PATIENT
  Sex: Female

DRUGS (38)
  1. BENADRYL [Concomitant]
     Dosage: 1 DF, QHS PRN
     Route: 048
  2. NAPROSYN [Concomitant]
  3. ACYCLOVIR [Concomitant]
  4. RALOXIFENE HCL [Concomitant]
  5. ZYRTEC [Concomitant]
  6. AREDIA [Suspect]
     Indication: OSTEOPOROSIS
     Dosage: 90 MG, QMO
     Route: 042
     Dates: start: 20000124
  7. NEURONTIN [Concomitant]
     Dosage: 1 DF, PRN
     Route: 048
  8. DEMEROL [Concomitant]
     Route: 030
  9. COLACE [Concomitant]
  10. AREDIA [Suspect]
     Indication: NEOPLASM MALIGNANT
     Dosage: 30 MG, UNK
  11. OXYCODONE HCL [Concomitant]
  12. PREDNISONE [Concomitant]
  13. AUGMENTIN [Concomitant]
  14. GLYCERIN [Concomitant]
  15. HYDROCHLOROTHIAZIDE [Concomitant]
  16. BIAXIN [Concomitant]
  17. FASLODEX [Concomitant]
     Dates: start: 20021001
  18. GEMZAR [Concomitant]
  19. FENTANYL [Concomitant]
  20. VERSED [Concomitant]
  21. WELLBUTRIN [Concomitant]
  22. CYTOXAN [Concomitant]
  23. METHOTREXATE [Concomitant]
  24. ZOFRAN [Concomitant]
     Route: 042
  25. HYDROXYZINE [Concomitant]
  26. MIRALAX [Concomitant]
     Dosage: 17 G, QD
  27. DARVOCET-N 50 [Concomitant]
  28. SODIUM PHOSPHATES [Concomitant]
  29. NEXIUM [Concomitant]
  30. ZOMETA [Suspect]
  31. CARBOPLATIN [Concomitant]
  32. DEXAMETHASONE SODIUM PHOSPHATE [Concomitant]
     Dosage: 2 DRP, BID PRN
  33. NIZORAL [Concomitant]
  34. LORAZEPAM [Concomitant]
  35. PROCHLORPERAZINE MALEATE [Concomitant]
     Dosage: 1 DF, PRN
     Route: 048
  36. FLUOROURACIL [Concomitant]
  37. ROXICET [Concomitant]
  38. BETAMETHASONE [Concomitant]

REACTIONS (64)
  - ROAD TRAFFIC ACCIDENT [None]
  - METASTASES TO PELVIS [None]
  - DIVERTICULUM [None]
  - PAIN IN EXTREMITY [None]
  - DYSPEPSIA [None]
  - URTICARIA [None]
  - ERYTHEMA OF EYELID [None]
  - VITREOUS FLOATERS [None]
  - SPINAL OSTEOARTHRITIS [None]
  - METASTASES TO BONE [None]
  - EYE ALLERGY [None]
  - PAIN [None]
  - HEPATIC CYST [None]
  - BONE PAIN [None]
  - ESSENTIAL HYPERTENSION [None]
  - ARTHRALGIA [None]
  - CHEST PAIN [None]
  - EYE PAIN [None]
  - ABDOMINAL DISCOMFORT [None]
  - FACIAL PAIN [None]
  - MYOFASCIAL PAIN SYNDROME [None]
  - NEOPLASM PROGRESSION [None]
  - CELLULITIS [None]
  - HERPES ZOSTER [None]
  - CANDIDIASIS [None]
  - OSTEOARTHRITIS [None]
  - MENINGITIS [None]
  - MIGRAINE [None]
  - GENERAL PHYSICAL HEALTH DETERIORATION [None]
  - INFECTION [None]
  - ECZEMA [None]
  - NEOPLASM MALIGNANT [None]
  - METASTASES TO LUNG [None]
  - RENAL CYST [None]
  - OSTEOLYSIS [None]
  - CORONARY ARTERY DISEASE [None]
  - CELLULITIS ORBITAL [None]
  - EAR PAIN [None]
  - OSTEONECROSIS OF JAW [None]
  - EMOTIONAL DISTRESS [None]
  - PHYSICAL DISABILITY [None]
  - HAEMORRHOIDS [None]
  - COLONIC POLYP [None]
  - DEPRESSION [None]
  - SEASONAL ALLERGY [None]
  - SLEEP DISORDER [None]
  - DEFORMITY [None]
  - BACK PAIN [None]
  - EYE SWELLING [None]
  - HYPERMETABOLISM [None]
  - ANAEMIA [None]
  - FLANK PAIN [None]
  - ASTHMA [None]
  - PERIORBITAL CELLULITIS [None]
  - CONJUNCTIVITIS VIRAL [None]
  - SWELLING FACE [None]
  - ANXIETY [None]
  - METASTASES TO SPINE [None]
  - DUODENOGASTRIC REFLUX [None]
  - HAEMATOCHEZIA [None]
  - NASAL ULCER [None]
  - DYSHIDROSIS [None]
  - CHRONIC SINUSITIS [None]
  - NASAL VESTIBULITIS [None]
